FAERS Safety Report 8119239-7 (Version None)
Quarter: 2012Q1

REPORT INFORMATION
  Report Type: 
  Country: None (occurrence: None)
  Receive Date: 20120207
  Receipt Date: 20120130
  Transmission Date: 20120608
  Serious: Yes (Hospitalization, Other)
  Sender: FDA-Public Use
  Company Number: US-CELGENEUS-163-21880-12010132

PATIENT
  Sex: Male

DRUGS (1)
  1. REVLIMID [Suspect]
     Dosage: 25 MILLIGRAM
     Route: 048
     Dates: start: 20111202

REACTIONS (15)
  - WHITE BLOOD CELL COUNT DECREASED [None]
  - BLOOD MAGNESIUM DECREASED [None]
  - DISORIENTATION [None]
  - HALLUCINATION [None]
  - HYPOGLYCAEMIA [None]
  - URINARY TRACT INFECTION [None]
  - HYPERGLYCAEMIA [None]
  - ANAEMIA [None]
  - DEHYDRATION [None]
  - URINARY RETENTION [None]
  - DEPRESSION [None]
  - STOMATITIS [None]
  - CONFUSIONAL STATE [None]
  - FATIGUE [None]
  - HYPERTENSION [None]
